FAERS Safety Report 7743889-0 (Version None)
Quarter: 2011Q3

REPORT INFORMATION
  Report Type: 
  Country: None (occurrence: None)
  Receive Date: 20110912
  Receipt Date: 20110831
  Transmission Date: 20111222
  Serious: Yes (Other)
  Sender: FDA-Public Use
  Company Number: BR-GLAXOSMITHKLINE-A0943761A

PATIENT
  Sex: Female

DRUGS (14)
  1. ACYCLOVIR [Suspect]
     Indication: HERPES ZOSTER
     Dosage: 500MG THREE TIMES PER DAY
     Dates: start: 20110823, end: 20110829
  2. ACYCLOVIR [Suspect]
     Dosage: 1G THREE TIMES PER DAY
     Dates: start: 20110823, end: 20110829
  3. DIGESAN [Suspect]
     Dates: start: 20110823, end: 20110830
  4. PANTOPRAZOLE [Suspect]
     Dosage: 40MG PER DAY
     Dates: start: 20110823, end: 20110830
  5. METICORTEN [Suspect]
     Dosage: 40MG PER DAY
     Dates: start: 20110823, end: 20110830
  6. CHLORTHALIDONE [Suspect]
     Dosage: 50MG PER DAY
     Dates: start: 20110823, end: 20110830
  7. ACETAMINOPHEN W/ CODEINE [Suspect]
     Dosage: 30MG THREE TIMES PER DAY
     Dates: start: 20110823, end: 20110830
  8. ENOXAPARIN SODIUM [Suspect]
     Dosage: 40MG PER DAY
     Dates: start: 20110823, end: 20110830
  9. TRAMADOL HCL [Suspect]
     Dosage: 100MG THREE TIMES PER DAY
     Dates: start: 20110823, end: 20110830
  10. NEURONTIN [Suspect]
     Dosage: 800MG PER DAY
     Dates: start: 20110823, end: 20110830
  11. ZINACEF [Suspect]
     Dosage: 750MG THREE TIMES PER DAY
     Dates: start: 20110823, end: 20110829
  12. NOVALGINA [Suspect]
     Dosage: 1G FOUR TIMES PER DAY
     Dates: start: 20110823, end: 20110830
  13. THIAMINE HYDROCHLORIDE [Suspect]
     Dosage: 300MG TWICE PER DAY
     Dates: start: 20110823, end: 20110830
  14. ATENOLOL [Suspect]
     Dosage: 50MG SINGLE DOSE
     Dates: start: 20110823, end: 20110830

REACTIONS (1)
  - HALLUCINATION [None]
